FAERS Safety Report 6539480-4 (Version None)
Quarter: 2010Q1

REPORT INFORMATION
  Report Type: 
  Country: None (occurrence: None)
  Receive Date: 20100115
  Receipt Date: 20091201
  Transmission Date: 20100710
  Serious: Yes (Hospitalization)
  Sender: FDA-Public Use
  Company Number: A0832895A

PATIENT
  Age: 44 Year
  Sex: Male
  Weight: 115.9 kg

DRUGS (7)
  1. AVANDIA [Suspect]
     Dosage: 4MG TWICE PER DAY
     Route: 048
     Dates: start: 20040915
  2. AVANDAMET [Suspect]
     Route: 048
     Dates: end: 20070801
  3. GLUCOPHAGE [Concomitant]
  4. LIPITOR [Concomitant]
  5. FISH OIL [Concomitant]
  6. ACCUPRIL [Concomitant]
  7. COREG [Concomitant]

REACTIONS (6)
  - CARDIAC FAILURE CONGESTIVE [None]
  - CHEST PAIN [None]
  - CORONARY ARTERY DISEASE [None]
  - MUSCULAR WEAKNESS [None]
  - MYOCARDIAL INFARCTION [None]
  - MYOCARDIAL ISCHAEMIA [None]
